FAERS Safety Report 24209273 (Version 1)
Quarter: 2024Q3

REPORT INFORMATION
  Report Type: Spontaneous
  Country: US (occurrence: US)
  Receive Date: 20240814
  Receipt Date: 20240814
  Transmission Date: 20241017
  Serious: No
  Sender: SANDOZ
  Company Number: US-SANDOZ-SDZ2024US072510

PATIENT
  Age: 77 Year
  Sex: Female

DRUGS (2)
  1. ZARXIO [Suspect]
     Active Substance: FILGRASTIM-SNDZ
     Dosage: 300 UG, OTHER
     Route: 058
  2. ZARXIO [Suspect]
     Active Substance: FILGRASTIM-SNDZ
     Indication: Product used for unknown indication
     Dosage: 480 UG, OTHER (DAILY FOR 3 DAYS)
     Route: 058

REACTIONS (2)
  - Insomnia [Unknown]
  - Headache [Recovered/Resolved]
